FAERS Safety Report 7087792-0 (Version None)
Quarter: 2010Q4

REPORT INFORMATION
  Report Type: 
  Country: None (occurrence: None)
  Receive Date: 20101108
  Receipt Date: 20101101
  Transmission Date: 20110411
  Serious: Yes (Death, Hospitalization)
  Sender: FDA-Public Use
  Company Number: US-US-EMD SERONO, INC.-7025402

PATIENT

DRUGS (6)
  1. REBIF [Suspect]
     Indication: MULTIPLE SCLEROSIS
     Route: 058
     Dates: start: 20090423, end: 20100501
  2. BACLOFEN [Concomitant]
     Indication: MUSCLE SPASTICITY
  3. UNSPECIFIED HIGH BLOOD PRESSURE MEDICATION [Concomitant]
     Indication: HYPERTENSION
  4. TRICOR [Concomitant]
     Indication: BLOOD CHOLESTEROL INCREASED
  5. MULTI-VITAMIN [Concomitant]
  6. VITAMIN E [Concomitant]

REACTIONS (1)
  - CEREBROVASCULAR ACCIDENT [None]
